FAERS Safety Report 4872919-9 (Version None)
Quarter: 2005Q4

REPORT INFORMATION
  Report Type: 
  Country: None (occurrence: None)
  Receive Date: 20051201
  Receipt Date: 20050807
  Transmission Date: 20060501
  Serious: No
  Sender: FDA-Public Use
  Company Number: 2005PV000855

PATIENT
  Age: 57 Year
  Sex: Female

DRUGS (11)
  1. BYETTA [Suspect]
     Indication: DIABETES MELLITUS NON-INSULIN-DEPENDENT
     Dosage: 5 MCG; BID; SC
     Route: 058
     Dates: start: 20050730
  2. LANTUS [Concomitant]
  3. ACTOS [Concomitant]
  4. PREVACID [Concomitant]
  5. PLAVIX [Concomitant]
  6. TRIAMTERENE [Concomitant]
  7. TRICOR [Concomitant]
  8. SYNTHROID [Concomitant]
  9. SYNTHROID [Concomitant]
  10. LANTUS [Concomitant]
  11. ACTOS [Concomitant]

REACTIONS (7)
  - ABDOMINAL PAIN [None]
  - BLOOD GLUCOSE INCREASED [None]
  - COLITIS [None]
  - DRUG INEFFECTIVE [None]
  - MYALGIA [None]
  - NAUSEA [None]
  - RECTAL HAEMORRHAGE [None]
